FAERS Safety Report 15585641 (Version 12)
Quarter: 2019Q1

REPORT INFORMATION
  Report Type: Report from Study
  Country: BE (occurrence: BE)
  Receive Date: 20181105
  Receipt Date: 20190329
  Transmission Date: 20190417
  Serious: Yes (Hospitalization, Other)
  Sender: FDA-Public Use
  Company Number: BE-BAYER-2018-118524

PATIENT
  Age: 69 Year
  Sex: Female

DRUGS (19)
  1. GLYCERIN [GLYCEROL] [Concomitant]
     Indication: CONSTIPATION
     Dosage: UNK
     Dates: start: 20180925
  2. CYCLOGYL [Concomitant]
     Active Substance: CYCLOPENTOLATE HYDROCHLORIDE
     Indication: OPHTHALMOLOGIC TREATMENT
     Dosage: 1 %
     Dates: start: 20190311
  3. IMODIUM [Concomitant]
     Active Substance: LOPERAMIDE HYDROCHLORIDE
     Indication: DIARRHOEA
     Dosage: UNK
     Dates: start: 20180914, end: 20180916
  4. PERINDOPRIL [Concomitant]
     Active Substance: PERINDOPRIL
     Indication: HYPERTENSION
     Dosage: 5 MG
  5. MACROGOL;POTASSIUM CHLORIDE;SODIUM BICARBONATE;SODIUM CHLORIDE [Concomitant]
     Indication: CONSTIPATION
     Dosage: UNK, PRN
     Dates: start: 201811
  6. L-THYROXINE [LEVOTHYROXINE] [Concomitant]
     Dosage: 1CO/D
     Dates: start: 20181031
  7. HYLO GEL [Concomitant]
     Indication: EYE PAIN
     Dosage: UNK
     Dates: start: 20181228
  8. RISPERDAL [Concomitant]
     Active Substance: RISPERIDONE
     Indication: DEPRESSION SUICIDAL
     Dosage: 25 MG /2WEEKS
  9. AMLOR [Concomitant]
     Active Substance: AMLODIPINE BESYLATE
     Indication: HYPERTENSION
     Dosage: 10 MG, UNK
  10. VITAMIN D3 [Concomitant]
     Active Substance: CHOLECALCIFEROL
     Dosage: 9 DR/D
  11. CALCIUM CARBONATE. [Concomitant]
     Active Substance: CALCIUM CARBONATE
     Indication: HYPERTENSION
     Dosage: 1 G
  12. NEXAVAR [Suspect]
     Active Substance: SORAFENIB
     Indication: HEPATOCELLULAR CARCINOMA
     Dosage: 200 MG
     Dates: start: 20181015
  13. ULTRA-K [Concomitant]
     Indication: HYPOKALAEMIA
  14. NOBITEN [NEBIVOLOL] [Concomitant]
     Indication: HYPERTENSION
     Dosage: 5 MG UNK
  15. DERMOVATE [Concomitant]
     Active Substance: CLOBETASOL
     Indication: SKIN DISORDER
     Dosage: UNK
     Dates: start: 20180703
  16. DOLZAM [Concomitant]
     Active Substance: TRAMADOL HYDROCHLORIDE
     Dosage: 3 CO/D
     Dates: start: 20181214
  17. NEXAVAR [Suspect]
     Active Substance: SORAFENIB
     Indication: HEPATOCELLULAR CARCINOMA
     Dosage: 400 MG, QD
     Dates: start: 20180613, end: 20181005
  18. COLECALCIFEROL [Concomitant]
     Active Substance: CHOLECALCIFEROL
     Dosage: DAILY DOSE 9
  19. IBUPROFEN. [Concomitant]
     Active Substance: IBUPROFEN
     Indication: PAIN
     Dosage: 400 MG
     Dates: start: 201809

REACTIONS (36)
  - Hepatitis [Not Recovered/Not Resolved]
  - Thyroid disorder [None]
  - Decreased appetite [Not Recovered/Not Resolved]
  - Diarrhoea [None]
  - Hypokalaemia [Not Recovered/Not Resolved]
  - Mucosal inflammation [Recovering/Resolving]
  - Abdominal pain [Not Recovered/Not Resolved]
  - Product dose omission [None]
  - Hypotension [Recovering/Resolving]
  - Eye pain [Recovering/Resolving]
  - Dysgeusia [None]
  - Palmar-plantar erythrodysaesthesia syndrome [Not Recovered/Not Resolved]
  - Muscle spasms [Recovered/Resolved]
  - Rash [Recovered/Resolved]
  - Hepatic pain [Not Recovered/Not Resolved]
  - Arthralgia [Recovered/Resolved]
  - Weight decreased [Recovering/Resolving]
  - Hypertension [Not Recovered/Not Resolved]
  - Diarrhoea [Recovered/Resolved]
  - Diarrhoea [Not Recovered/Not Resolved]
  - Constipation [None]
  - Pruritus [Recovered/Resolved]
  - Pruritus [None]
  - Hair colour changes [None]
  - Constipation [Recovered/Resolved]
  - Diarrhoea [None]
  - Fatigue [Not Recovered/Not Resolved]
  - Diarrhoea [Recovered/Resolved]
  - Pruritus [Recovered/Resolved]
  - Alopecia [Not Recovered/Not Resolved]
  - Headache [None]
  - Pallor [None]
  - Dry skin [Not Recovered/Not Resolved]
  - Abdominal pain [Recovered/Resolved]
  - Abdominal pain [Not Recovered/Not Resolved]
  - Diarrhoea [Recovered/Resolved]

NARRATIVE: CASE EVENT DATE: 201806
